FAERS Safety Report 7533757-1 (Version None)
Quarter: 2011Q2

REPORT INFORMATION
  Report Type: 
  Country: None (occurrence: None)
  Receive Date: 20110608
  Receipt Date: 20110527
  Transmission Date: 20111010
  Serious: Yes (Death)
  Sender: FDA-Public Use
  Company Number: GB-UCBSA-034364

PATIENT
  Age: 80 Year
  Sex: Male

DRUGS (5)
  1. KEPPRA [Suspect]
     Indication: STATUS EPILEPTICUS
  2. VALPROATE SODIUM [Suspect]
     Indication: STATUS EPILEPTICUS
  3. PHENYTOIN [Suspect]
     Indication: STATUS EPILEPTICUS
  4. PHENYTOIN [Suspect]
  5. BENZODIAZEPINES [Suspect]
     Indication: STATUS EPILEPTICUS

REACTIONS (1)
  - STATUS EPILEPTICUS [None]
